FAERS Safety Report 18599148 (Version 1)
Quarter: 2020Q4

REPORT INFORMATION
  Report Type: Report from Study
  Country: None (occurrence: US)
  Receive Date: 20201210
  Receipt Date: 20201210
  Transmission Date: 20210114
  Serious: Yes (Other)
  Sender: FDA-Public Use
  Company Number: US-ABBVIE-20K-163-3680598-00

PATIENT
  Sex: Female

DRUGS (1)
  1. SYNTHROID [Suspect]
     Active Substance: LEVOTHYROXINE SODIUM
     Indication: PRODUCT USED FOR UNKNOWN INDICATION
     Route: 048

REACTIONS (6)
  - Thyroid disorder [Unknown]
  - Drug intolerance [Unknown]
  - Autoimmune thyroiditis [Unknown]
  - Autoimmune disorder [Unknown]
  - Alopecia [Unknown]
  - Thyroidectomy [Unknown]

NARRATIVE: CASE EVENT DATE: 202001
